FAERS Safety Report 20668587 (Version 1)
Quarter: 2022Q2

REPORT INFORMATION
  Report Type: Spontaneous
  Country: US (occurrence: None)
  Receive Date: 20220401
  Receipt Date: 20220401
  Transmission Date: 20220721
  Serious: Yes (Hospitalization)
  Sender: FDA-Public Use
  Company Number: None

PATIENT
  Age: 29 Year
  Sex: Female
  Weight: 87.75 kg

DRUGS (3)
  1. .DELTA.8-TETRAHYDROCANNABINOL\HERBALS [Suspect]
     Active Substance: .DELTA.8-TETRAHYDROCANNABINOL\HERBALS
     Indication: Attention deficit hyperactivity disorder
     Route: 060
     Dates: start: 20220210, end: 20220401
  2. CELEXA [Concomitant]
     Active Substance: CITALOPRAM HYDROBROMIDE
  3. IBUPROFEN [Concomitant]
     Active Substance: IBUPROFEN

REACTIONS (14)
  - Sinus tachycardia [None]
  - Anxiety [None]
  - Nausea [None]
  - Muscle tightness [None]
  - Muscle twitching [None]
  - Tremor [None]
  - Tremor [None]
  - Dry mouth [None]
  - Eye irritation [None]
  - Hypoaesthesia oral [None]
  - Hypoaesthesia [None]
  - Hypoaesthesia [None]
  - Paraesthesia [None]
  - Paraesthesia oral [None]

NARRATIVE: CASE EVENT DATE: 20220401
